FAERS Safety Report 14406414 (Version 3)
Quarter: 2018Q1

REPORT INFORMATION
  Report Type: Report from Study
  Country: US (occurrence: US)
  Receive Date: 20180118
  Receipt Date: 20180202
  Transmission Date: 20180509
  Serious: Yes (Death, Hospitalization)
  Sender: FDA-Public Use
  Company Number: US-JNJFOC-20180119542

PATIENT
  Age: 83 Year
  Sex: Male

DRUGS (11)
  1. DUREZOL [Concomitant]
     Active Substance: DIFLUPREDNATE
  2. DORZOLAMIDE [Concomitant]
     Active Substance: DORZOLAMIDE
  3. SYNTHROID [Concomitant]
     Active Substance: LEVOTHYROXINE SODIUM
  4. VITAMIN B NOS [Concomitant]
     Active Substance: VITAMIN B
  5. TOPROL XL [Concomitant]
     Active Substance: METOPROLOL SUCCINATE
  6. SIMVASTATIN. [Concomitant]
     Active Substance: SIMVASTATIN
  7. LUMIGAN [Concomitant]
     Active Substance: BIMATOPROST
  8. ASPIRIN. [Concomitant]
     Active Substance: ASPIRIN
  9. FLOMAX [Concomitant]
     Active Substance: TAMSULOSIN HYDROCHLORIDE
  10. LISINOPRIL. [Concomitant]
     Active Substance: LISINOPRIL
  11. IMBRUVICA [Suspect]
     Active Substance: IBRUTINIB
     Indication: CHRONIC LYMPHOCYTIC LEUKAEMIA
     Route: 048
     Dates: start: 20161017, end: 20171229

REACTIONS (6)
  - Neoplasm [Unknown]
  - Lung cancer metastatic [Unknown]
  - Skin cancer [Unknown]
  - Death [Fatal]
  - Blood calcium increased [Unknown]
  - Renal impairment [Unknown]

NARRATIVE: CASE EVENT DATE: 20171229
